FAERS Safety Report 10041457 (Version 1)
Quarter: 2014Q1

REPORT INFORMATION
  Report Type: Spontaneous
  Country: AU (occurrence: None)
  Receive Date: 20140325
  Receipt Date: 20140325
  Transmission Date: 20141002
  Serious: Yes (Other)
  Sender: FDA-Public Use
  Company Number: AU-015050

PATIENT
  Sex: 0

DRUGS (1)
  1. CERVIDIL [Suspect]
     Indication: PRODUCT USED FOR UNKNOWN INDICATION
     Dates: end: 2007

REACTIONS (1)
  - Tachycardia foetal [None]
